FAERS Safety Report 22973480 (Version 4)
Quarter: 2023Q4

REPORT INFORMATION
  Report Type: Spontaneous
  Country: US (occurrence: US)
  Receive Date: 20230922
  Receipt Date: 20231219
  Transmission Date: 20240109
  Serious: Yes (Hospitalization)
  Sender: FDA-Public Use
  Company Number: US-PFIZER INC-PV202300158356

PATIENT
  Age: 69 Year
  Sex: Female

DRUGS (1)
  1. XELJANZ XR [Suspect]
     Active Substance: TOFACITINIB CITRATE
     Dosage: UNK

REACTIONS (13)
  - Chronic obstructive pulmonary disease [Unknown]
  - Hyperhidrosis [Unknown]
  - Hot flush [Unknown]
  - Peripheral swelling [Unknown]
  - Pruritus [Unknown]
  - Contusion [Unknown]
  - Palpitations [Unknown]
  - Arthralgia [Recovering/Resolving]
  - Panic attack [Unknown]
  - Menopausal symptoms [Unknown]
  - Joint swelling [Recovering/Resolving]
  - Gait disturbance [Unknown]
  - Arthritis [Unknown]
